FAERS Safety Report 7312525-X (Version None)
Quarter: 2011Q1

REPORT INFORMATION
  Report Type: 
  Country: None (occurrence: None)
  Receive Date: 20110214
  Receipt Date: 20110209
  Transmission Date: 20110831
  Serious: Yes (Hospitalization)
  Sender: FDA-Public Use
  Company Number: ACO_20098_2010

PATIENT
  Age: 67 Year
  Sex: Female
  Weight: 71.7 kg

DRUGS (10)
  1. AMANTADINE HCL [Concomitant]
  2. BACLOFEN [Concomitant]
  3. IRON (IRON) [Concomitant]
  4. CALCIUM (CALCIUM) [Concomitant]
  5. COENZYME Q10 [Concomitant]
  6. MULTIVITAMINS (ASCORBIC ACID, ERGOCALCIFEROL, FOLIC ACID, NICOTINAMIDE [Concomitant]
  7. AMPYRA [Suspect]
     Indication: MULTIPLE SCLEROSIS
     Dosage: 10 MG, BID, ORAL ; 10 MG, BID, ORAL
     Route: 048
     Dates: start: 20100824, end: 20100908
  8. AMPYRA [Suspect]
     Indication: MULTIPLE SCLEROSIS
     Dosage: 10 MG, BID, ORAL ; 10 MG, BID, ORAL
     Route: 048
     Dates: start: 20100912, end: 20101004
  9. FLEXERIL /00428402/ (CYCLOBENZAPRINE HYDROCHLORIDE) [Concomitant]
  10. FISH OIL (FISH OIL) [Concomitant]

REACTIONS (8)
  - HIP FRACTURE [None]
  - VERTIGO [None]
  - CYSTITIS [None]
  - GAIT DISTURBANCE [None]
  - BALANCE DISORDER [None]
  - FALL [None]
  - MUSCLE SPASMS [None]
  - DIZZINESS [None]
